FAERS Safety Report 16998811 (Version 1)
Quarter: 2019Q4

REPORT INFORMATION
  Report Type: Spontaneous
  Country: US (occurrence: US)
  Receive Date: 20191105
  Receipt Date: 20191105
  Transmission Date: 20200122
  Serious: Yes (Death)
  Sender: FDA-Public Use
  Company Number: None

PATIENT
  Sex: Male

DRUGS (13)
  1. CARB/LEVO [Concomitant]
     Active Substance: CARBIDOPA\LEVODOPA
  2. FOLIC ACID. [Concomitant]
     Active Substance: FOLIC ACID
  3. LEVOTHYROXIN [Concomitant]
     Active Substance: LEVOTHYROXINE
  4. RIVASTIGMINE. [Concomitant]
     Active Substance: RIVASTIGMINE
  5. SERTRALINE [Concomitant]
     Active Substance: SERTRALINE HYDROCHLORIDE
  6. CARBIDOPA. [Concomitant]
     Active Substance: CARBIDOPA
  7. CHLORTHALID [Concomitant]
     Active Substance: CHLORTHALIDONE
  8. IRBESARTAN. [Concomitant]
     Active Substance: IRBESARTAN
  9. MIDORINE [Concomitant]
     Active Substance: MIDODRINE
  10. ENBREL [Suspect]
     Active Substance: ETANERCEPT
     Indication: RHEUMATOID ARTHRITIS
     Dosage: ?          OTHER FREQUENCY:Q7DAYS;?
     Route: 058
     Dates: start: 20190205
  11. ATORVASTATIN [Concomitant]
     Active Substance: ATORVASTATIN
  12. QUETIAPINE. [Concomitant]
     Active Substance: QUETIAPINE
  13. AMLODIPINE [Concomitant]
     Active Substance: AMLODIPINE BESYLATE

REACTIONS (1)
  - Infection [None]
